FAERS Safety Report 22352328 (Version 1)
Quarter: 2023Q2

REPORT INFORMATION
  Report Type: Spontaneous
  Country: US (occurrence: US)
  Receive Date: 20230522
  Receipt Date: 20230522
  Transmission Date: 20230722
  Serious: Yes (Death, Other)
  Sender: FDA-Public Use
  Company Number: US-GILEAD-2023-0628717

PATIENT
  Age: 31 Year
  Sex: Male
  Weight: 99.5 kg

DRUGS (1)
  1. YESCARTA [Suspect]
     Active Substance: AXICABTAGENE CILOLEUCEL
     Indication: Plasmablastic lymphoma
     Dosage: UNK, INFUSION
     Route: 065
     Dates: start: 20230119, end: 20230119

REACTIONS (20)
  - Disease progression [Fatal]
  - Hallucination, visual [Unknown]
  - Hallucination, auditory [Unknown]
  - Disseminated intravascular coagulation [Unknown]
  - Cytokine release syndrome [Unknown]
  - Immune effector cell-associated neurotoxicity syndrome [Unknown]
  - Encephalopathy [Unknown]
  - Hypoalbuminaemia [Unknown]
  - Fatigue [Unknown]
  - Tachycardia [Unknown]
  - Aphasia [Unknown]
  - Memory impairment [Unknown]
  - Agitation [Unknown]
  - Confusional state [Unknown]
  - Tachypnoea [Unknown]
  - Fibrin D dimer increased [Unknown]
  - Hypofibrinogenaemia [Unknown]
  - Nausea [Unknown]
  - Vomiting [Unknown]
  - Pleural effusion [Unknown]

NARRATIVE: CASE EVENT DATE: 20230120
